FAERS Safety Report 12667554 (Version 2)
Quarter: 2016Q3

REPORT INFORMATION
  Report Type: Spontaneous
  Country: DE (occurrence: DE)
  Receive Date: 20160819
  Receipt Date: 20160906
  Transmission Date: 20161109
  Serious: Yes (Hospitalization)
  Sender: FDA-Public Use
  Company Number: DE-BAYER-2016-161338

PATIENT
  Age: 64 Year
  Sex: Male
  Weight: 70 kg

DRUGS (1)
  1. GADOVIST [Suspect]
     Active Substance: GADOBUTROL
     Indication: MUSCULOSKELETAL PAIN
     Dosage: 7 ML, ONCE
     Dates: start: 20160719, end: 20160719

REACTIONS (4)
  - Nausea [None]
  - Pain [None]
  - Tremor [None]
  - Acute coronary syndrome [None]

NARRATIVE: CASE EVENT DATE: 20160719
